FAERS Safety Report 13079921 (Version 1)
Quarter: 2017Q1

REPORT INFORMATION
  Report Type: Spontaneous
  Country: US (occurrence: US)
  Receive Date: 20170103
  Receipt Date: 20170103
  Transmission Date: 20170428
  Serious: Yes (Hospitalization)
  Sender: FDA-Public Use
  Company Number: US-BAYER-2016-244876

PATIENT
  Age: 68 Year
  Sex: Female

DRUGS (3)
  1. ADEMPAS [Suspect]
     Active Substance: RIOCIGUAT
     Indication: PULMONARY ARTERIAL HYPERTENSION
  2. ADEMPAS [Suspect]
     Active Substance: RIOCIGUAT
     Indication: PULMONARY ARTERIAL HYPERTENSION
     Dosage: 1.5 MG, TID
     Route: 048
     Dates: start: 20160927, end: 20161205
  3. ADEMPAS [Suspect]
     Active Substance: RIOCIGUAT
     Indication: PULMONARY ARTERIAL HYPERTENSION
     Dosage: 1 MG, TID

REACTIONS (10)
  - Vomiting [None]
  - Diarrhoea [None]
  - Nausea [None]
  - Intestinal dilatation [None]
  - Troponin increased [None]
  - Abdominal tenderness [None]
  - Abdominal pain [None]
  - Acute kidney injury [None]
  - Hypophagia [None]
  - Abdominal distension [None]
